FAERS Safety Report 5934906-9 (Version None)
Quarter: 2008Q4

REPORT INFORMATION
  Report Type: 
  Country: None (occurrence: None)
  Receive Date: 20081027
  Receipt Date: 20081015
  Transmission Date: 20090506
  Serious: Yes (Hospitalization, Other)
  Sender: FDA-Public Use
  Company Number: 2008-03860

PATIENT
  Age: 64 Year
  Sex: Female
  Weight: 78 kg

DRUGS (10)
  1. VELCADE [Suspect]
     Indication: MULTIPLE MYELOMA
     Dates: start: 20050509
  2. REVLIMID [Suspect]
     Indication: MULTIPLE MYELOMA
     Dosage: 10 MG, ORAL
     Route: 048
     Dates: start: 20070619, end: 20080301
  3. PREDNISONE [Concomitant]
  4. IRON(IRON) [Concomitant]
  5. ASPIRIN [Concomitant]
  6. PERCOCET (PARACETAMOL, OXYCODONE HYDROCLORIDE) [Concomitant]
  7. POTASSIUM (POTASSIUM) [Concomitant]
  8. PEPCID [Concomitant]
  9. ATROVENT [Concomitant]
  10. ATROVENT [Concomitant]

REACTIONS (19)
  - ANAEMIA [None]
  - AORTIC VALVE INCOMPETENCE [None]
  - AORTIC VALVE SCLEROSIS [None]
  - BREAST CANCER FEMALE [None]
  - DISEASE PROGRESSION [None]
  - DRUG INEFFECTIVE [None]
  - DRUG TOXICITY [None]
  - EMPHYSEMA [None]
  - FATIGUE [None]
  - HEADACHE [None]
  - HYPOXIA [None]
  - LEFT VENTRICULAR HYPERTROPHY [None]
  - LOBAR PNEUMONIA [None]
  - MEMORY IMPAIRMENT [None]
  - METASTASES TO LYMPH NODES [None]
  - NEUROPATHY PERIPHERAL [None]
  - PYREXIA [None]
  - SCAR [None]
  - SKIN REACTION [None]
